FAERS Safety Report 15251239 (Version 1)
Quarter: 2018Q3

REPORT INFORMATION
  Report Type: Spontaneous
  Country: US (occurrence: US)
  Receive Date: 20180807
  Receipt Date: 20180807
  Transmission Date: 20181010
  Serious: No
  Sender: FDA-Public Use
  Company Number: US-BAUSCH-BL-2018-019710

PATIENT
  Sex: Female

DRUGS (2)
  1. JUBLIA [Suspect]
     Active Substance: EFINACONAZOLE
     Indication: TINEA PEDIS
     Route: 065
  2. JUBLIA [Suspect]
     Active Substance: EFINACONAZOLE
     Indication: OFF LABEL USE

REACTIONS (5)
  - Inability to afford medication [Unknown]
  - Nail disorder [Unknown]
  - Nail discolouration [Unknown]
  - Nail growth abnormal [Unknown]
  - Off label use [Unknown]
